FAERS Safety Report 9238873 (Version 1)
Quarter: 2013Q2

REPORT INFORMATION
  Report Type: Spontaneous
  Country: FR (occurrence: FR)
  Receive Date: 20130418
  Receipt Date: 20130418
  Transmission Date: 20140414
  Serious: Yes (Death)
  Sender: FDA-Public Use
  Company Number: FR-ELI_LILLY_AND_COMPANY-FR201304002083

PATIENT
  Age: 42 Year
  Sex: Male

DRUGS (5)
  1. CYMBALTA [Suspect]
     Indication: TOXICITY TO VARIOUS AGENTS
     Dosage: 28 DF, SINGLE
     Route: 048
     Dates: start: 20130218
  2. TERCIAN [Concomitant]
     Indication: TOXICITY TO VARIOUS AGENTS
     Dosage: 100 MG, UNK
     Route: 048
     Dates: start: 20130218
  3. SERESTA [Concomitant]
     Indication: TOXICITY TO VARIOUS AGENTS
     Dosage: 50 MG, UNK
     Route: 048
     Dates: start: 20130218
  4. NOCTAMIDE [Concomitant]
     Indication: TOXICITY TO VARIOUS AGENTS
     Dosage: 1 MG, UNK
     Route: 048
     Dates: start: 20130218
  5. FENOFIBRATE [Concomitant]
     Indication: TOXICITY TO VARIOUS AGENTS
     Dosage: 200 MG, UNK
     Route: 048
     Dates: start: 20130218

REACTIONS (2)
  - Toxicity to various agents [Fatal]
  - Overdose [Not Recovered/Not Resolved]
